FAERS Safety Report 9248589 (Version 2)
Quarter: 2013Q3

REPORT INFORMATION
  Report Type: Spontaneous
  Country: SE (occurrence: SE)
  Receive Date: 20130423
  Receipt Date: 20130708
  Transmission Date: 20140515
  Serious: Yes (Other)
  Sender: FDA-Public Use
  Company Number: SE-ASTRAZENECA-2013SE26187

PATIENT
  Age: 807 Month
  Sex: Male

DRUGS (6)
  1. ATACAND [Suspect]
     Route: 048
  2. ZESTRIL [Suspect]
     Route: 048
  3. AMLODIPIN ACTAVIS [Suspect]
  4. ENALAPRIL [Suspect]
  5. KREDEX [Suspect]
  6. TRAMADOL [Concomitant]

REACTIONS (1)
  - Polyneuropathy [Not Recovered/Not Resolved]
